FAERS Safety Report 21134679 (Version 2)
Quarter: 2022Q4

REPORT INFORMATION
  Report Type: Other
  Country: US (occurrence: US)
  Receive Date: 20220727
  Receipt Date: 20221021
  Transmission Date: 20230112
  Serious: No
  Sender: FDA-Public Use
  Company Number: US-DECIPHERA PHARMACEUTICALS LLC-2022US000616

PATIENT
  Sex: Female

DRUGS (5)
  1. QINLOCK [Suspect]
     Active Substance: RIPRETINIB
     Indication: Gastrointestinal stromal tumour
     Dosage: 150 MILLIGRAM, QD
     Route: 048
     Dates: start: 20220517, end: 20220712
  2. QINLOCK [Suspect]
     Active Substance: RIPRETINIB
     Dosage: UNK
     Route: 048
     Dates: start: 20220722, end: 20220724
  3. QINLOCK [Suspect]
     Active Substance: RIPRETINIB
     Dosage: UNK
     Route: 048
     Dates: start: 20220727
  4. ENALAPRIL [Concomitant]
     Active Substance: ENALAPRIL
     Indication: Blood pressure abnormal
     Dosage: 10 MILLIGRAM, QD
  5. SPIRONOLACTONE [Concomitant]
     Active Substance: SPIRONOLACTONE
     Indication: Product used for unknown indication
     Dosage: 25 MILLIGRAM, QD

REACTIONS (1)
  - COVID-19 [Recovering/Resolving]

NARRATIVE: CASE EVENT DATE: 20220713
